FAERS Safety Report 7815207-0 (Version None)
Quarter: 2011Q4

REPORT INFORMATION
  Report Type: 
  Country: None (occurrence: None)
  Receive Date: 20111014
  Receipt Date: 20111005
  Transmission Date: 20120403
  Serious: Yes (Other)
  Sender: FDA-Public Use
  Company Number: NL-JNJFOC-20111003520

PATIENT
  Sex: Male
  Weight: 103 kg

DRUGS (3)
  1. REMICADE [Suspect]
     Route: 042
     Dates: start: 20091216
  2. REMICADE [Suspect]
     Indication: CROHN'S DISEASE
     Route: 042
     Dates: start: 20100203
  3. REMICADE [Suspect]
     Route: 042
     Dates: start: 20100324

REACTIONS (1)
  - PREGNANCY OF PARTNER [None]
